FAERS Safety Report 4448168-5 (Version None)
Quarter: 2004Q3

REPORT INFORMATION
  Report Type: 
  Country: None (occurrence: None)
  Receive Date: 20040812
  Receipt Date: 20040610
  Transmission Date: 20050211
  Serious: No
  Sender: FDA-Public Use
  Company Number: USA040669714

PATIENT
  Sex: Male
  Weight: 84 kg

DRUGS (2)
  1. CIALIS [Suspect]
     Dosage: 20 MG/2 WEEK
     Dates: start: 20031201, end: 20040101
  2. VARDENAFIL HYDROCHLORIDE [Concomitant]

REACTIONS (4)
  - ARTHROPATHY [None]
  - DRUG INEFFECTIVE [None]
  - TENDON INJURY [None]
  - THERAPEUTIC RESPONSE DECREASED [None]
